FAERS Safety Report 20770803 (Version 2)
Quarter: 2022Q2

REPORT INFORMATION
  Report Type: Spontaneous
  Country: DE (occurrence: DE)
  Receive Date: 20220429
  Receipt Date: 20220505
  Transmission Date: 20220721
  Serious: Yes (Hospitalization)
  Sender: FDA-Public Use
  Company Number: DE-TEVA-2022-DE-2028171

PATIENT
  Age: 45 Year
  Sex: Male

DRUGS (5)
  1. VENLAFAXINE HCL [Suspect]
     Active Substance: VENLAFAXINE HYDROCHLORIDE
     Indication: Panic attack
     Dosage: 150 MG, DAILY
  2. VENLAFAXINE HCL [Suspect]
     Active Substance: VENLAFAXINE HYDROCHLORIDE
     Indication: Anxiety
     Dosage: 37.5 MG
  3. VENLAFAXINE HCL [Suspect]
     Active Substance: VENLAFAXINE HYDROCHLORIDE
     Dosage: ALTERNATING 37.5 MG DAILY AND NO DOSE
     Route: 065
  4. ESCITALOPRAM [Concomitant]
     Active Substance: ESCITALOPRAM OXALATE
     Dosage: 5 MG (FOUR-DAY PARALLEL DOSING OF ESCITALOPRAM 5 MG IN DROP FORM)
  5. ESCITALOPRAM [Concomitant]
     Active Substance: ESCITALOPRAM OXALATE
     Dosage: 1 MG, WEEKLY

REACTIONS (10)
  - Alcoholism [Unknown]
  - Drug withdrawal syndrome [Recovered/Resolved]
  - Sensory disturbance [Recovered/Resolved]
  - Dizziness [Recovering/Resolving]
  - Balance disorder [Recovered/Resolved]
  - Influenza like illness [Recovered/Resolved]
  - Nausea [Recovered/Resolved]
  - Sleep disorder [Recovered/Resolved]
  - Insomnia [Recovered/Resolved]
  - Off label use [Unknown]
